FAERS Safety Report 5747000-7 (Version None)
Quarter: 2008Q2

REPORT INFORMATION
  Report Type: 
  Country: None (occurrence: None)
  Receive Date: 20080522
  Receipt Date: 20080512
  Transmission Date: 20081010
  Serious: Yes (Other)
  Sender: FDA-Public Use
  Company Number: US-PFIZER INC-2008042716

PATIENT
  Sex: Female
  Weight: 47.3 kg

DRUGS (2)
  1. CHANTIX [Suspect]
     Indication: SMOKING CESSATION THERAPY
  2. ATIVAN [Concomitant]
     Indication: ANXIETY

REACTIONS (3)
  - DIPLOPIA [None]
  - EMPHYSEMA [None]
  - SURGERY [None]
